FAERS Safety Report 18058173 (Version 1)
Quarter: 2020Q3

REPORT INFORMATION
  Report Type: Spontaneous
  Country: US (occurrence: US)
  Receive Date: 20200722
  Receipt Date: 20200722
  Transmission Date: 20201103
  Serious: Yes (Hospitalization)
  Sender: FDA-Public Use
  Company Number: None

PATIENT
  Age: 37 Year
  Sex: Male

DRUGS (2)
  1. CAPECITABINE 500MG TAB [Suspect]
     Active Substance: CAPECITABINE
     Indication: CARCINOID TUMOUR
     Dosage: D1?D14 OF 28 DAY CYCLE
     Route: 048
     Dates: start: 20200530
  2. TEMOZOLOMIDE 140MG CAP [Suspect]
     Active Substance: TEMOZOLOMIDE
     Indication: CARCINOID TUMOUR
     Dosage: DAILIY DAY1?DAY14 OF 28 DAY CYCLE
     Route: 048
     Dates: start: 20200530

REACTIONS (2)
  - Gastric haemorrhage [None]
  - Therapy cessation [None]

NARRATIVE: CASE EVENT DATE: 20200701
